FAERS Safety Report 21669018 (Version 2)
Quarter: 2023Q2

REPORT INFORMATION
  Report Type: Report from Study
  Country: US (occurrence: US)
  Receive Date: 20221201
  Receipt Date: 20230509
  Transmission Date: 20230722
  Serious: No
  Sender: FDA-Public Use
  Company Number: US-ABBVIE-4184135

PATIENT
  Age: 62 Year
  Sex: Male
  Weight: 142.88 kg

DRUGS (15)
  1. SKYRIZI [Suspect]
     Active Substance: RISANKIZUMAB-RZAA
     Indication: Psoriasis
     Dosage: FORM STRENGTH: 150 MILLIGRAM?ON WEEK 4 THEN EVERY 12 WEEKS
     Route: 058
     Dates: start: 20220726
  2. SKYRIZI [Suspect]
     Active Substance: RISANKIZUMAB-RZAA
     Indication: Arthritis
  3. SKYRIZI [Suspect]
     Active Substance: RISANKIZUMAB-RZAA
     Indication: Illness
  4. GABAPENTIN A 300 MG CAPSULE [Concomitant]
     Indication: Product used for unknown indication
  5. TRAZODONE HCL 100 MG TABLET [Concomitant]
     Indication: Product used for unknown indication
  6. TORSEMIDE 20 MG TABLET [Concomitant]
     Indication: Product used for unknown indication
  7. ISOSORBIDE MONONITRATE [Concomitant]
     Active Substance: ISOSORBIDE MONONITRATE
     Indication: Product used for unknown indication
  8. OMEPRAZOLE 40 MG CAPSULE DR [Concomitant]
     Indication: Product used for unknown indication
  9. FENOFIBRATE S 160 MG TABLET [Concomitant]
     Indication: Product used for unknown indication
  10. POTASSIUM CHLORIDE [Concomitant]
     Active Substance: POTASSIUM CHLORIDE
     Indication: Product used for unknown indication
  11. CLOBETASOL PROPIONATE E [Concomitant]
     Indication: Product used for unknown indication
  12. MELOXICAM A 15 MG TABLET [Concomitant]
     Indication: Product used for unknown indication
  13. TAMSULOSIN HYDROCHLORIDE [Concomitant]
     Active Substance: TAMSULOSIN HYDROCHLORIDE
     Indication: Product used for unknown indication
  14. CLOBETASOL PROPIONATE [Concomitant]
     Active Substance: CLOBETASOL PROPIONATE
     Indication: Product used for unknown indication
  15. LOSARTAN POTASSIUM 25 MG TABLET [Concomitant]
     Indication: Product used for unknown indication

REACTIONS (1)
  - Skin ulcer [Unknown]

NARRATIVE: CASE EVENT DATE: 20220901
